FAERS Safety Report 5483925-8 (Version None)
Quarter: 2007Q4

REPORT INFORMATION
  Report Type: 
  Country: None (occurrence: None)
  Receive Date: 20071012
  Receipt Date: 20071008
  Transmission Date: 20080405
  Serious: Yes (Hospitalization)
  Sender: FDA-Public Use
  Company Number: GR-BRISTOL-MYERS SQUIBB COMPANY-13932264

PATIENT
  Age: 65 Year
  Sex: Female

DRUGS (3)
  1. PROCEF TABS 500 MG [Suspect]
     Indication: BRONCHIAL DISORDER
     Route: 048
     Dates: start: 20071002, end: 20071002
  2. TRIATEC HCT [Concomitant]
     Indication: HYPERTENSION
     Dosage: TRIATEC HCT (5+25)MG WAS CHANGED TO TRIATEC 5MG (RAMIPRIL) WITHOUT HCTZ (FROM 02/OCT/07 TO DATE).
     Route: 048
     Dates: end: 20071002
  3. LOBIVON [Concomitant]
     Indication: HYPERTENSION
     Route: 048
     Dates: end: 20071002

REACTIONS (3)
  - DIARRHOEA [None]
  - SYNCOPE [None]
  - VOMITING [None]
